FAERS Safety Report 6877264-8 (Version None)
Quarter: 2010Q3

REPORT INFORMATION
  Report Type: 
  Country: None (occurrence: None)
  Receive Date: 20100727
  Receipt Date: 20090821
  Transmission Date: 20110219
  Serious: No
  Sender: FDA-Public Use
  Company Number: US-ABBOTT-09P-163-0594210-00

PATIENT
  Sex: Female
  Weight: 82.628 kg

DRUGS (7)
  1. SYNTHROID [Suspect]
     Indication: AUTOIMMUNE THYROIDITIS
     Dosage: VARYING DOSES
     Dates: start: 20070101, end: 20090819
  2. SYNTHROID [Suspect]
     Dates: start: 20090819
  3. PRILOSEC [Concomitant]
     Indication: GASTROOESOPHAGEAL REFLUX DISEASE
  4. TOPROL-XL [Concomitant]
     Indication: VASCULAR GRAFT
  5. LIPITOR [Concomitant]
     Indication: VASCULAR GRAFT
  6. ASPIRIN [Concomitant]
     Indication: CARDIOVASCULAR EVENT PROPHYLAXIS
  7. XANAX [Concomitant]
     Indication: ANXIETY

REACTIONS (2)
  - BLOOD THYROID STIMULATING HORMONE INCREASED [None]
  - VITAMIN D ABNORMAL [None]
